FAERS Safety Report 9584142 (Version 1)
Quarter: 2013Q4

REPORT INFORMATION
  Report Type: Spontaneous
  Country: US (occurrence: US)
  Receive Date: 20131002
  Receipt Date: 20131002
  Transmission Date: 20140711
  Serious: No
  Sender: FDA-Public Use
  Company Number: US-AMGEN-USASP2013051443

PATIENT
  Age: 61 Year
  Sex: Female
  Weight: 57.6 kg

DRUGS (7)
  1. ENBREL [Suspect]
     Indication: PRODUCT USED FOR UNKNOWN INDICATION
     Dosage: 50 MG/ML, QWK
     Route: 058
     Dates: end: 201210
  2. COZAAR [Concomitant]
     Dosage: 25 MG, UNK
  3. PREDNISONE [Concomitant]
     Dosage: 1 MG, UNK
  4. VALTREX [Concomitant]
     Dosage: 500 MG, UNK
  5. SEROQUEL [Concomitant]
     Dosage: 100 MG, UNK
  6. LAMOTRIGINE [Concomitant]
     Dosage: 25 MG, UNK
  7. METANX [Concomitant]
     Dosage: UNK

REACTIONS (1)
  - Latent tuberculosis [Unknown]
